FAERS Safety Report 15587087 (Version 1)
Quarter: 2018Q4

REPORT INFORMATION
  Report Type: Spontaneous
  Country: US (occurrence: US)
  Receive Date: 20181106
  Receipt Date: 20181106
  Transmission Date: 20190205
  Serious: Yes (Hospitalization)
  Sender: FDA-Public Use
  Company Number: None

PATIENT
  Age: 57 Year
  Sex: Female

DRUGS (12)
  1. ASPIRIN. [Concomitant]
     Active Substance: ASPIRIN
  2. LISINOPRIL AND HYDROCHLOROTHIAZIDE [Concomitant]
     Active Substance: HYDROCHLOROTHIAZIDE\LISINOPRIL
  3. HUMIRA [Suspect]
     Active Substance: ADALIMUMAB
     Indication: PSORIASIS
     Dosage: ?          OTHER FREQUENCY:EVERY OTHER WEEK;?
     Route: 058
     Dates: start: 20180821
  4. ZOLPIDEM [Concomitant]
     Active Substance: ZOLPIDEM\ZOLPIDEM TARTRATE
  5. CRESTOR [Concomitant]
     Active Substance: ROSUVASTATIN CALCIUM
  6. MELOXICAM. [Concomitant]
     Active Substance: MELOXICAM
  7. METHOTREXATE. [Concomitant]
     Active Substance: METHOTREXATE
  8. URSODIOL. [Concomitant]
     Active Substance: URSODIOL
  9. ARMOUR THYROID [Concomitant]
     Active Substance: THYROID, PORCINE
  10. FOLIC ACID. [Concomitant]
     Active Substance: FOLIC ACID
  11. SERTRALINE [Concomitant]
     Active Substance: SERTRALINE HYDROCHLORIDE
  12. VASCEPA [Concomitant]
     Active Substance: ICOSAPENT ETHYL

REACTIONS (2)
  - Psoriasis [None]
  - Product dose omission [None]

NARRATIVE: CASE EVENT DATE: 20181105
